FAERS Safety Report 11377822 (Version 2)
Quarter: 2015Q3

REPORT INFORMATION
  Report Type: Spontaneous
  Country: US (occurrence: US)
  Receive Date: 20150811
  Receipt Date: 20150903
  Transmission Date: 20151125
  Serious: No
  Sender: FDA-Public Use
  Company Number: US-ELI_LILLY_AND_COMPANY-US200909003670

PATIENT
  Sex: Female

DRUGS (9)
  1. VERELAN [Concomitant]
     Active Substance: VERAPAMIL HYDROCHLORIDE
     Indication: FLUID RETENTION
  2. NORVASC [Concomitant]
     Active Substance: AMLODIPINE BESYLATE
     Indication: BLOOD PRESSURE ABNORMAL
  3. HUMALOG [Suspect]
     Active Substance: INSULIN LISPRO
  4. HUMULIN N [Suspect]
     Active Substance: INSULIN HUMAN
  5. ACCUPRIN [Concomitant]
     Active Substance: QUINAPRIL HYDROCHLORIDE
     Indication: BLOOD PRESSURE ABNORMAL
  6. ALLEGRA [Concomitant]
     Active Substance: FEXOFENADINE HYDROCHLORIDE
  7. ASPIRIN. [Concomitant]
     Active Substance: ASPIRIN
     Dosage: 81 MG, UNK
  8. TYLENOL [Concomitant]
     Active Substance: ACETAMINOPHEN
  9. LYRICA [Concomitant]
     Active Substance: PREGABALIN

REACTIONS (4)
  - Anxiety [Unknown]
  - Cataract [Unknown]
  - Visual acuity reduced [Not Recovered/Not Resolved]
  - Drug dispensing error [Unknown]

NARRATIVE: CASE EVENT DATE: 200909
